FAERS Safety Report 18559427 (Version 3)
Quarter: 2021Q1

REPORT INFORMATION
  Report Type: Spontaneous
  Country: PT (occurrence: PT)
  Receive Date: 20201130
  Receipt Date: 20210119
  Transmission Date: 20210419
  Serious: No
  Sender: FDA-Public Use
  Company Number: PT-009507513-2011PRT016546

PATIENT
  Age: 54 Year
  Sex: Female

DRUGS (3)
  1. FORXIGA [Concomitant]
     Active Substance: DAPAGLIFLOZIN
     Dosage: BEFORE BREAKFAST
  2. STAGID [Concomitant]
     Active Substance: METFORMIN PAMOATE
     Dosage: AT LUNCH AND DINNER
  3. JANUVIA [Suspect]
     Active Substance: SITAGLIPTIN PHOSPHATE
     Dosage: ONCE DAILY AT NIGHT; STRENGHT 50 (UNITS NOT PROVIDED)
     Route: 048
     Dates: start: 202007

REACTIONS (4)
  - Pharyngeal swelling [Unknown]
  - Dyspnoea [Unknown]
  - Obstructive airways disorder [Unknown]
  - Productive cough [Unknown]

NARRATIVE: CASE EVENT DATE: 202011
